FAERS Safety Report 4991179-1 (Version None)
Quarter: 2006Q2

REPORT INFORMATION
  Report Type: 
  Country: None (occurrence: None)
  Receive Date: 20060427
  Receipt Date: 20060420
  Transmission Date: 20061013
  Serious: Yes (Death, Hospitalization)
  Sender: FDA-Public Use
  Company Number: 200611571GDS

PATIENT
  Age: 53 Year
  Sex: Male

DRUGS (2)
  1. ACETYLSALICYLIC ACID SRT [Suspect]
  2. VALPROATE SODIUM [Suspect]

REACTIONS (9)
  - COMA [None]
  - HAEMODIALYSIS [None]
  - HAEMODYNAMIC INSTABILITY [None]
  - HEPATIC FAILURE [None]
  - LACTIC ACIDOSIS [None]
  - MITOCHONDRIAL CYTOPATHY [None]
  - MULTIPLE DRUG OVERDOSE [None]
  - PANCREATITIS ACUTE [None]
  - RESPIRATORY DEPRESSION [None]
